FAERS Safety Report 18951136 (Version 2)
Quarter: 2021Q1

REPORT INFORMATION
  Report Type: Report from Study
  Country: None (occurrence: IT)
  Receive Date: 20210228
  Receipt Date: 20210326
  Transmission Date: 20210420
  Serious: Yes (Death)
  Sender: FDA-Public Use
  Company Number: IT-ABBVIE-21K-083-3791110-00

PATIENT
  Age: 53 Year
  Sex: Male

DRUGS (1)
  1. VENETOCLAX. [Suspect]
     Active Substance: VENETOCLAX
     Indication: MANTLE CELL LYMPHOMA
     Route: 048
     Dates: start: 20201202, end: 20201227

REACTIONS (3)
  - Off label use [Recovered/Resolved]
  - Mantle cell lymphoma [Fatal]
  - Sepsis [Fatal]

NARRATIVE: CASE EVENT DATE: 20201202
